FAERS Safety Report 4435809-1 (Version None)
Quarter: 2004Q3

REPORT INFORMATION
  Report Type: 
  Country: None (occurrence: None)
  Receive Date: 20040826
  Receipt Date: 20040818
  Transmission Date: 20050211
  Serious: Yes (Hospitalization)
  Sender: FDA-Public Use
  Company Number: S04-USA-04604-01

PATIENT
  Age: 50 Year
  Sex: Female

DRUGS (4)
  1. LEXAPRO [Suspect]
     Indication: ANXIETY
     Dosage: 10 MG QD PO
     Route: 048
     Dates: start: 20030101, end: 20040726
  2. LEXAPRO [Suspect]
     Indication: DEPRESSION
     Dosage: 10 MG QD PO
     Route: 048
     Dates: start: 20030101, end: 20040726
  3. CLONIDINE HCL [Concomitant]
  4. KEPPRA [Concomitant]

REACTIONS (6)
  - AUTONOMIC NERVOUS SYSTEM IMBALANCE [None]
  - DIZZINESS POSTURAL [None]
  - HYPERTENSION [None]
  - ORTHOSTATIC HYPOTENSION [None]
  - SYNCOPE [None]
  - VOCAL CORD PARALYSIS [None]
